FAERS Safety Report 13101712 (Version 2)
Quarter: 2017Q1

REPORT INFORMATION
  Report Type: Spontaneous
  Country: US (occurrence: US)
  Receive Date: 20170110
  Receipt Date: 20170221
  Transmission Date: 20170428
  Serious: No
  Sender: FDA-Public Use
  Company Number: US-PFIZER INC-2017007725

PATIENT
  Age: 67 Year
  Sex: Female
  Weight: 55.78 kg

DRUGS (1)
  1. LYRICA [Suspect]
     Active Substance: PREGABALIN
     Indication: MUSCULOSKELETAL PAIN
     Dosage: 100 MG, UNK
     Dates: start: 2015

REACTIONS (1)
  - Drug ineffective for unapproved indication [Unknown]
